FAERS Safety Report 9578362 (Version 2)
Quarter: 2013Q4

REPORT INFORMATION
  Report Type: Spontaneous
  Country: US (occurrence: US)
  Receive Date: 20131001
  Receipt Date: 20131001
  Transmission Date: 20140711
  Serious: No
  Sender: FDA-Public Use
  Company Number: US-AMGEN-USASP2013012145

PATIENT
  Age: 25 Year
  Sex: Male
  Weight: 107.48 kg

DRUGS (16)
  1. ENBREL [Suspect]
     Indication: PSORIATIC ARTHROPATHY
     Dosage: 50 MG, QWK
     Route: 058
     Dates: start: 201302
  2. ENBREL [Suspect]
     Indication: PSORIASIS
  3. CYMBALTA [Concomitant]
     Dosage: 20 MG, UNK
  4. KLONOPIN [Concomitant]
     Dosage: 1 MG, UNK
  5. TRAZODONE [Concomitant]
     Dosage: 50 MG, UNK
  6. AMBIEN [Concomitant]
     Dosage: 5 MG, UNK
  7. BYSTOLIC [Concomitant]
     Dosage: 2.5 MG, UNK
  8. LISINOPRIL [Concomitant]
     Dosage: 5 MG, UNK
  9. METHOTREXATE [Concomitant]
     Indication: PSORIATIC ARTHROPATHY
     Dosage: 20 MG, QWK
     Route: 048
  10. METHOTREXATE [Concomitant]
     Indication: PSORIASIS
  11. ALLOPURINOL [Concomitant]
     Indication: GOUT
     Dosage: 400 MG, QD
     Route: 048
  12. MOBIC [Concomitant]
     Indication: PSORIATIC ARTHROPATHY
     Dosage: 15 MG, QD
     Route: 048
  13. NEXIUM                             /01479302/ [Concomitant]
     Dosage: 20 MG, UNK
  14. TAGAMET                            /00397401/ [Concomitant]
     Dosage: 300 MG, UNK
  15. FOLIC ACID [Concomitant]
     Dosage: UNK
  16. VITAMIN D2 [Concomitant]
     Indication: VITAMIN D DECREASED
     Dosage: 50000 IU, QWK
     Route: 048

REACTIONS (1)
  - Sinusitis [Unknown]
